FAERS Safety Report 6064181-9 (Version None)
Quarter: 2009Q1

REPORT INFORMATION
  Report Type: 
  Country: None (occurrence: None)
  Receive Date: 20090204
  Receipt Date: 20090123
  Transmission Date: 20090719
  Serious: Yes (Life-Threatening)
  Sender: FDA-Public Use
  Company Number: IT-PFIZER INC-2009161924

PATIENT

DRUGS (1)
  1. ZITHROMAX [Suspect]
     Indication: PYREXIA
     Dosage: 500 MG, 1X/DAY
     Dates: start: 20090105, end: 20090105

REACTIONS (3)
  - HYPERHIDROSIS [None]
  - HYPOTENSION [None]
  - METABOLIC ACIDOSIS [None]
